FAERS Safety Report 19472226 (Version 2)
Quarter: 2021Q3

REPORT INFORMATION
  Report Type: Other
  Country: JP (occurrence: JP)
  Receive Date: 20210629
  Receipt Date: 20210709
  Transmission Date: 20211014
  Serious: Yes (Other)
  Sender: FDA-Public Use
  Company Number: JP-ROCHE-2857032

PATIENT

DRUGS (3)
  1. VANDETANIB. [Suspect]
     Active Substance: VANDETANIB
     Indication: NON-SMALL CELL LUNG CANCER
     Route: 065
  2. PEMETREXED. [Suspect]
     Active Substance: PEMETREXED
     Indication: NON-SMALL CELL LUNG CANCER
     Route: 065
  3. BEVACIZUMAB. [Suspect]
     Active Substance: BEVACIZUMAB
     Indication: NON-SMALL CELL LUNG CANCER
     Route: 065

REACTIONS (8)
  - Diarrhoea [Unknown]
  - Dermatitis acneiform [Unknown]
  - Electrocardiogram QT prolonged [Unknown]
  - Decreased appetite [Unknown]
  - Dry skin [Unknown]
  - Weight decreased [Unknown]
  - Hypertension [Unknown]
  - Photosensitivity reaction [Unknown]
